FAERS Safety Report 25360264 (Version 1)
Quarter: 2025Q2

REPORT INFORMATION
  Report Type: Spontaneous
  Country: US (occurrence: US)
  Receive Date: 20250527
  Receipt Date: 20250527
  Transmission Date: 20250716
  Serious: No
  Sender: ACCORD
  Company Number: US-Accord-433219

PATIENT
  Sex: Female

DRUGS (19)
  1. METHOTREXATE [Suspect]
     Active Substance: METHOTREXATE
     Indication: Rheumatoid arthritis
  2. ZITHROMAX [Concomitant]
     Active Substance: AZITHROMYCIN DIHYDRATE
  3. ALEVE [Concomitant]
     Active Substance: NAPROXEN SODIUM
  4. CLOTRIMAZOLE [Concomitant]
     Active Substance: CLOTRIMAZOLE
  5. LASIX [Concomitant]
     Active Substance: FUROSEMIDE
  6. PULMICORT TURBUHALER [Concomitant]
     Active Substance: BUDESONIDE
  7. PREDNISONE [Concomitant]
     Active Substance: PREDNISONE
  8. NORCO [Concomitant]
     Active Substance: ACETAMINOPHEN\HYDROCODONE BITARTRATE
  9. COUMADIN [Concomitant]
     Active Substance: WARFARIN SODIUM
  10. ZYRTEC [Concomitant]
     Active Substance: CETIRIZINE HYDROCHLORIDE
  11. ARFORMOTEROL TARTRATE [Concomitant]
     Active Substance: ARFORMOTEROL TARTRATE
  12. SINGULAIR [Concomitant]
     Active Substance: MONTELUKAST SODIUM
  13. CINNAMON [Concomitant]
     Active Substance: CINNAMON
  14. ZAROXOLYN [Concomitant]
     Active Substance: METOLAZONE
  15. NOVOLOG [Concomitant]
     Active Substance: INSULIN ASPART
  16. PEPCID [Concomitant]
     Active Substance: FAMOTIDINE
  17. FLONASE [Concomitant]
     Active Substance: FLUTICASONE PROPIONATE
  18. TUMS [Concomitant]
     Active Substance: CALCIUM CARBONATE
  19. ALBUTEROL [Concomitant]
     Active Substance: ALBUTEROL

REACTIONS (1)
  - Drug ineffective [Unknown]
